FAERS Safety Report 15296190 (Version 6)
Quarter: 2018Q4

REPORT INFORMATION
  Report Type: Spontaneous
  Country: US (occurrence: US)
  Receive Date: 20180820
  Receipt Date: 20181115
  Transmission Date: 20190204
  Serious: Yes (Other)
  Sender: FDA-Public Use
  Company Number: US-BAYER-2018-149423

PATIENT

DRUGS (1)
  1. GADOLINIUM IN UNSPECIFIED DRUG [Suspect]
     Active Substance: GADOLINIUM
     Dosage: UNK

REACTIONS (4)
  - Cerebral disorder [None]
  - Nontherapeutic agent urine positive [None]
  - Adverse event [None]
  - Blood heavy metal increased [None]
